FAERS Safety Report 23200228 (Version 1)
Quarter: 2023Q4

REPORT INFORMATION
  Report Type: Spontaneous
  Country: US (occurrence: US)
  Receive Date: 20231118
  Receipt Date: 20231118
  Transmission Date: 20240109
  Serious: No
  Sender: FDA-Public Use
  Company Number: US-SA-SAC20231109001511

PATIENT
  Sex: Female
  Weight: 61.23 kg

DRUGS (5)
  1. DUPIXENT [Suspect]
     Active Substance: DUPILUMAB
     Indication: Nasal polyps
     Dosage: 300 MG, QOW
     Route: 058
  2. DUPIXENT [Suspect]
     Active Substance: DUPILUMAB
     Indication: Orthostatic hypotension
  3. DUPIXENT [Suspect]
     Active Substance: DUPILUMAB
     Indication: Autonomic neuropathy
  4. DUPIXENT [Suspect]
     Active Substance: DUPILUMAB
     Indication: Parkinson^s disease
  5. DUPIXENT [Suspect]
     Active Substance: DUPILUMAB
     Indication: Dyskinesia

REACTIONS (5)
  - Asthma [Unknown]
  - Chest discomfort [Unknown]
  - Irritability [Unknown]
  - Discomfort [Unknown]
  - Product use in unapproved indication [Unknown]
